FAERS Safety Report 8501733 (Version 4)
Quarter: 2013Q2

REPORT INFORMATION
  Report Type: Spontaneous
  Country: US (occurrence: US)
  Receive Date: 20120410
  Receipt Date: 20130614
  Transmission Date: 20140414
  Serious: Yes (Disabling)
  Sender: FDA-Public Use
  Company Number: US-B.I. PHARMACEUTICALS,INC./RIDGEFIELD-2012-BP-06525BP

PATIENT
  Age: 67 Year
  Sex: Male
  Weight: 66.2 kg

DRUGS (13)
  1. TRADJENTA [Suspect]
     Indication: DIABETES MELLITUS
     Dosage: 5 MG
     Route: 048
     Dates: start: 20111213, end: 20120216
  2. LOVAZA [Concomitant]
     Dosage: 2 G
     Route: 048
     Dates: start: 20110525
  3. METFORMIN [Concomitant]
  4. NIACIN ER [Concomitant]
     Indication: BLOOD CHOLESTEROL INCREASED
     Dosage: 2000 MG
     Route: 048
     Dates: start: 20111227, end: 20120623
  5. ZANTAC [Concomitant]
     Dosage: 300 MG
     Route: 048
     Dates: start: 20110524
  6. CRESTOR [Concomitant]
     Indication: BLOOD CHOLESTEROL INCREASED
  7. COQ 10 SG [Concomitant]
     Dosage: 300 MG
     Route: 048
  8. VIT B COMPLEX [Concomitant]
     Route: 048
  9. MULTIVITAMIN [Concomitant]
     Route: 048
  10. XANAX [Concomitant]
     Indication: ANXIETY
  11. ASPIRIN [Concomitant]
  12. NIACIN [Concomitant]
  13. NEXIUM [Concomitant]

REACTIONS (4)
  - Pancreatitis [Recovered/Resolved]
  - Amylase increased [Recovered/Resolved]
  - Lipase increased [Recovered/Resolved]
  - Abdominal pain [Recovered/Resolved]
